FAERS Safety Report 7041813-X (Version None)
Quarter: 2010Q4

REPORT INFORMATION
  Report Type: 
  Country: None (occurrence: None)
  Receive Date: 20101007
  Receipt Date: 20100924
  Transmission Date: 20110411
  Serious: Yes (Disabling, Other)
  Sender: FDA-Public Use
  Company Number: 2010-3346

PATIENT
  Age: 69 Year
  Sex: Female
  Weight: 65 kg

DRUGS (11)
  1. APO-GO PEN (APO-GO) (APOMORPHINE HYDROCHLORIDE) (APOMORPHINE HYDROCHLO [Suspect]
     Indication: ON AND OFF PHENOMENON
     Dosage: NOT REPORTED (2 MG, NOT REPORTED) SUBCUTANEOUS (3 MG, NOT REPORTED), SUBCUTANEOUS
     Route: 058
     Dates: end: 20100522
  2. APO-GO PEN (APO-GO) (APOMORPHINE HYDROCHLORIDE) (APOMORPHINE HYDROCHLO [Suspect]
     Indication: ON AND OFF PHENOMENON
     Dosage: NOT REPORTED (2 MG, NOT REPORTED) SUBCUTANEOUS (3 MG, NOT REPORTED), SUBCUTANEOUS
     Route: 058
     Dates: start: 20100515
  3. STALEVO (STALEVO) [Concomitant]
  4. SINEMET [Concomitant]
  5. REQUIP XL [Concomitant]
  6. SALOSPIR (ACETYLSALICYCLIC ACID) [Concomitant]
  7. DILTIAZEM HYDROCHLORIDE [Concomitant]
  8. LIPITOR [Concomitant]
  9. LAZPRAZOLE (LANSOPRAZOLE) [Concomitant]
  10. CLIROTON (DOMPERIDONE) [Concomitant]
  11. DIAMICRON (GLICLAZIDE) [Concomitant]

REACTIONS (4)
  - DIZZINESS [None]
  - GENERAL PHYSICAL HEALTH DETERIORATION [None]
  - HEADACHE [None]
  - NAUSEA [None]
